FAERS Safety Report 8794540 (Version 2)
Quarter: 2012Q4

REPORT INFORMATION
  Report Type: 
  Country: US (occurrence: US)
  Receive Date: 20120917
  Receipt Date: 20121024
  Transmission Date: 20130627
  Serious: Yes (Other)
  Sender: FDA-Public Use
  Company Number: US-VERTEX PHARMACEUTICAL INC.-AE-2012-011647

PATIENT
  Age: 65 Year
  Sex: Female
  Weight: 66 kg

DRUGS (10)
  1. INCIVEK [Suspect]
     Indication: HEPATITIS C
     Dosage: 750 mg, tid
     Route: 048
     Dates: start: 20120715
  2. RIBAVIRIN [Suspect]
     Indication: HEPATITIS C
     Dosage: 3 DF, bid
     Route: 048
     Dates: start: 20120715, end: 20120730
  3. RIBAVIRIN [Suspect]
     Dosage: 2 DF, bid
     Route: 048
     Dates: start: 20120730
  4. PEGASYS [Suspect]
     Indication: HEPATITIS C
     Dosage: 180 ?g, UNK
     Route: 058
     Dates: start: 20120715
  5. NOVOLOG [Concomitant]
  6. LANTUS [Concomitant]
  7. AMLODIPINE [Concomitant]
  8. PROBIOTIC [Concomitant]
  9. NEUPOGEN [Concomitant]
     Dosage: 480 ?g, UNK
  10. PROCRIT                            /00909301/ [Concomitant]

REACTIONS (8)
  - Red blood cell count decreased [Unknown]
  - Inappropriate schedule of drug administration [Recovered/Resolved]
  - White blood cell count decreased [Unknown]
  - White blood cell count increased [Not Recovered/Not Resolved]
  - Abdominal discomfort [Unknown]
  - Flatulence [Not Recovered/Not Resolved]
  - Fatigue [Unknown]
  - Platelet count decreased [Not Recovered/Not Resolved]
